FAERS Safety Report 8406367-1 (Version None)
Quarter: 2012Q2

REPORT INFORMATION
  Report Type: 
  Country: None (occurrence: None)
  Receive Date: 20120604
  Receipt Date: 20120601
  Transmission Date: 20120825
  Serious: Yes (Death)
  Sender: FDA-Public Use
  Company Number: PHFR2012GB002471

PATIENT
  Sex: Female

DRUGS (4)
  1. CLOZARIL [Suspect]
     Indication: SCHIZOPHRENIA
     Dosage: UNK UKN, UNK
     Route: 048
     Dates: start: 20030211
  2. ZOPICLONE [Concomitant]
     Indication: INSOMNIA
     Dosage: 7.5 MG, DAILY
     Route: 048
     Dates: start: 20090101
  3. CLOZARIL [Suspect]
     Dosage: 450 MG, DAILY
     Route: 048
     Dates: start: 20040101
  4. PAROXETINE HCL [Concomitant]
     Indication: DEPRESSION
     Dosage: 30 MG, UNK
     Route: 048
     Dates: start: 20080101

REACTIONS (1)
  - SUDDEN DEATH [None]
